FAERS Safety Report 17860345 (Version 1)
Quarter: 2020Q2

REPORT INFORMATION
  Report Type: Spontaneous
  Country: US (occurrence: US)
  Receive Date: 20200604
  Receipt Date: 20200604
  Transmission Date: 20200714
  Serious: Yes (Disabling, Other)
  Sender: FDA-Public Use
  Company Number: None

PATIENT
  Age: 74 Year
  Sex: Female
  Weight: 103.5 kg

DRUGS (6)
  1. VITAMIN B12 [Concomitant]
     Active Substance: CYANOCOBALAMIN
  2. KRILL OIL [Concomitant]
     Active Substance: DIETARY SUPPLEMENT\KRILL OIL
  3. ZILRETTA [Suspect]
     Active Substance: TRIAMCINOLONE ACETONIDE
     Indication: ARTHRALGIA
     Route: 058
     Dates: start: 20190625, end: 20190625
  4. 81 ASPIRIN [Concomitant]
  5. BIOTIN [Concomitant]
     Active Substance: BIOTIN
  6. VITAMIN D [Concomitant]
     Active Substance: VITAMIN D NOS

REACTIONS (13)
  - Chest pain [None]
  - Alopecia [None]
  - Herpes simplex [None]
  - Eye pain [None]
  - Abdominal distension [None]
  - Bladder pain [None]
  - Oral herpes [None]
  - Cardiac failure congestive [None]
  - Vision blurred [None]
  - Vertigo [None]
  - Hypertrichosis [None]
  - Urinary tract infection [None]
  - Candida infection [None]

NARRATIVE: CASE EVENT DATE: 20190625
